FAERS Safety Report 12126982 (Version 2)
Quarter: 2016Q1

REPORT INFORMATION
  Report Type: Spontaneous
  Country: US (occurrence: US)
  Receive Date: 20160229
  Receipt Date: 20160304
  Transmission Date: 20160526
  Serious: Yes (Other)
  Sender: FDA-Public Use
  Company Number: US-AMNEAL PHARMACEUTICALS-2016AMN00125

PATIENT
  Sex: Female
  Weight: 78.5 kg

DRUGS (2)
  1. FLECAINIDE ACETATE. [Suspect]
     Active Substance: FLECAINIDE ACETATE
     Dosage: 50 MG, 2X/DAY, ONE TABLET AT 9AM AND ONE TABLET AT 9PM
     Route: 048
     Dates: start: 201405
  2. CARDIZEM [Suspect]
     Active Substance: DILTIAZEM HYDROCHLORIDE

REACTIONS (2)
  - Flushing [Unknown]
  - Condition aggravated [Not Recovered/Not Resolved]
